FAERS Safety Report 17334466 (Version 2)
Quarter: 2020Q1

REPORT INFORMATION
  Report Type: Report from Study
  Country: FR (occurrence: FR)
  Receive Date: 20200128
  Receipt Date: 20200207
  Transmission Date: 20200409
  Serious: Yes (Death, Hospitalization, Other)
  Sender: FDA-Public Use
  Company Number: FR-JAZZ-2020-FR-001235

PATIENT
  Sex: Female
  Weight: 52.5 kg

DRUGS (1)
  1. DEFITELIO [Suspect]
     Active Substance: DEFIBROTIDE SODIUM
     Indication: VENOOCCLUSIVE LIVER DISEASE
     Dosage: UNKNOWN DOSE
     Route: 042
     Dates: start: 20191107

REACTIONS (2)
  - Multiple organ dysfunction syndrome [Unknown]
  - Venoocclusive liver disease [Fatal]

NARRATIVE: CASE EVENT DATE: 20191111
